FAERS Safety Report 7312858-7 (Version None)
Quarter: 2011Q1

REPORT INFORMATION
  Report Type: 
  Country: None (occurrence: None)
  Receive Date: 20110224
  Receipt Date: 20110124
  Transmission Date: 20110831
  Serious: Yes (Other)
  Sender: FDA-Public Use
  Company Number: PHFR2010GB06060

PATIENT
  Sex: Female
  Weight: 112 kg

DRUGS (4)
  1. CLOZARIL [Suspect]
     Dosage: 150 MG NIGHT
     Route: 048
     Dates: start: 20010601, end: 20101216
  2. CLOZARIL [Suspect]
     Indication: SCHIZOPHRENIA
     Dosage: UNK
     Route: 048
     Dates: start: 20010101
  3. VENLAFAXINE [Concomitant]
     Indication: DEPRESSION
     Dosage: 225 MG
     Route: 048
     Dates: start: 20000201
  4. RISPERDONE [Concomitant]
     Indication: SCHIZOPHRENIA
     Dosage: 3 MG
     Route: 048
     Dates: start: 20100601

REACTIONS (3)
  - DIABETES MELLITUS [None]
  - SEDATION [None]
  - THYROID DISORDER [None]
